FAERS Safety Report 11679964 (Version 3)
Quarter: 2015Q4

REPORT INFORMATION
  Report Type: Spontaneous
  Country: US (occurrence: US)
  Receive Date: 20151027
  Receipt Date: 20151110
  Transmission Date: 20160304
  Serious: No
  Sender: FDA-Public Use
  Company Number: US-ELI_LILLY_AND_COMPANY-US201011006607

PATIENT
  Age: 63 Year
  Sex: Female

DRUGS (5)
  1. FORTEO [Suspect]
     Active Substance: TERIPARATIDE
     Indication: OSTEOPOROSIS POSTMENOPAUSAL
     Dosage: 20 UG, DAILY (1/D)
     Route: 065
     Dates: start: 20101111
  2. FORTEO [Suspect]
     Active Substance: TERIPARATIDE
     Dosage: 20 UG, DAILY (1/D)
     Route: 065
  3. FORTEO [Suspect]
     Active Substance: TERIPARATIDE
     Dosage: 20 UG, DAILY (1/D)
     Route: 065
  4. FORTEO [Suspect]
     Active Substance: TERIPARATIDE
     Dosage: 20 UG, DAILY (1/D)
     Route: 065
  5. FORTEO [Suspect]
     Active Substance: TERIPARATIDE
     Dosage: 20 UG, DAILY (1/D)
     Route: 065

REACTIONS (30)
  - Viral diarrhoea [Recovered/Resolved]
  - Appetite disorder [Unknown]
  - Gait disturbance [Recovering/Resolving]
  - Viral infection [Unknown]
  - Regurgitation [Unknown]
  - Muscular weakness [Recovering/Resolving]
  - Dysstasia [Unknown]
  - Musculoskeletal discomfort [Unknown]
  - Fall [Recovered/Resolved]
  - Injection site haemorrhage [Not Recovered/Not Resolved]
  - Sleep disorder [Unknown]
  - Injection site pain [Not Recovered/Not Resolved]
  - Asthenia [Unknown]
  - Fall [Recovered/Resolved]
  - Constipation [Unknown]
  - Fall [Recovered/Resolved]
  - Multiple sclerosis [Unknown]
  - Limb discomfort [Unknown]
  - Pain [Not Recovered/Not Resolved]
  - Fall [Unknown]
  - Weight bearing difficulty [Unknown]
  - Muscle spasms [Not Recovered/Not Resolved]
  - Sensory loss [Unknown]
  - Paraesthesia [Unknown]
  - Injection site reaction [Unknown]
  - Movement disorder [Recovered/Resolved]
  - Fall [Unknown]
  - Vomiting [Unknown]
  - Arthralgia [Not Recovered/Not Resolved]
  - Injection site bruising [Not Recovered/Not Resolved]

NARRATIVE: CASE EVENT DATE: 201012
